FAERS Safety Report 15746636 (Version 2)
Quarter: 2019Q2

REPORT INFORMATION
  Report Type: Spontaneous
  Country: US (occurrence: US)
  Receive Date: 20181220
  Receipt Date: 20190403
  Transmission Date: 20190711
  Serious: No
  Sender: FDA-Public Use
  Company Number: US-PRINSTON PHARMACEUTICAL INC.-2018PRN01514

PATIENT
  Sex: Female
  Weight: 77.1 kg

DRUGS (17)
  1. METOPROLOL. [Concomitant]
     Active Substance: METOPROLOL
  2. COUMADIN [Concomitant]
     Active Substance: WARFARIN SODIUM
  3. LASIX [Concomitant]
     Active Substance: FUROSEMIDE
  4. VITAMIN D NOS [Concomitant]
     Active Substance: VITAMIN D NOS
  5. POTASSIUM [Concomitant]
     Active Substance: POTASSIUM
     Dosage: OCCASIONALLY
  6. VALSARTAN. [Suspect]
     Active Substance: VALSARTAN
     Indication: HYPERTENSION
     Dosage: 40 MG, 1X/DAY
     Route: 048
     Dates: start: 20180307, end: 20180516
  7. METFORMIN [Concomitant]
     Active Substance: METFORMIN HYDROCHLORIDE
  8. CALCIUM [Concomitant]
     Active Substance: CALCIUM
     Dosage: OCCASIONALLY
  9. ASPIRIN. [Concomitant]
     Active Substance: ASPIRIN
  10. BIOTIN [Concomitant]
     Active Substance: BIOTIN
  11. SYNTHROID [Concomitant]
     Active Substance: LEVOTHYROXINE SODIUM
  12. COQ10 [Concomitant]
     Active Substance: UBIDECARENONE
  13. RED RICE YEAST [Concomitant]
     Active Substance: DIETARY SUPPLEMENT
  14. ASTAXANTHIN [Concomitant]
  15. MAGNESIUM [Concomitant]
     Active Substance: MAGNESIUM
     Dosage: OCCASIONALLY
  16. SYMBICORT [Concomitant]
     Active Substance: BUDESONIDE\FORMOTEROL FUMARATE DIHYDRATE
  17. AREDS 2 CAPSULE [Concomitant]

REACTIONS (7)
  - Diarrhoea [Recovering/Resolving]
  - Flatulence [Unknown]
  - Irritable bowel syndrome [Recovering/Resolving]
  - Gastrooesophageal reflux disease [Recovering/Resolving]
  - Discomfort [Recovering/Resolving]
  - Dyspepsia [Recovering/Resolving]
  - Gastrointestinal disorder [Recovering/Resolving]

NARRATIVE: CASE EVENT DATE: 2018
